FAERS Safety Report 4415193-X (Version None)
Quarter: 2004Q3

REPORT INFORMATION
  Report Type: 
  Country: None (occurrence: None)
  Receive Date: 20040802
  Receipt Date: 20040719
  Transmission Date: 20050211
  Serious: Yes (Hospitalization, Other)
  Sender: FDA-Public Use
  Company Number: 04-00372

PATIENT
  Sex: Female

DRUGS (4)
  1. CARBAMAZEPINE [Suspect]
  2. PHENOBARBITAL TABLETS (PUREPAC) [Suspect]
  3. PHENOBARBITAL ELIXIR (ALPHARMA) [Suspect]
  4. PHENYTOIN [Suspect]

REACTIONS (13)
  - DRUG EXPOSURE DURING PREGNANCY [None]
  - EOSINOPHILIA [None]
  - HEPATITIS [None]
  - HYPERSENSITIVITY [None]
  - MALAISE [None]
  - NASAL CONGESTION [None]
  - NAUSEA [None]
  - PANCYTOPENIA [None]
  - PREGNANCY [None]
  - PYREXIA [None]
  - RASH MACULO-PAPULAR [None]
  - SINUS DISORDER [None]
  - TENDERNESS [None]
